FAERS Safety Report 12281761 (Version 3)
Quarter: 2016Q4

REPORT INFORMATION
  Report Type: Spontaneous
  Country: US (occurrence: US)
  Receive Date: 20160419
  Receipt Date: 20161014
  Transmission Date: 20170207
  Serious: Yes (Other)
  Sender: FDA-Public Use
  Company Number: US-TEVA-644384USA

PATIENT
  Age: 38 Year
  Sex: Female

DRUGS (5)
  1. TREXIMET [Concomitant]
     Active Substance: NAPROXEN SODIUM\SUMATRIPTAN SUCCINATE
  2. ZECUITY [Suspect]
     Active Substance: SUMATRIPTAN SUCCINATE
     Indication: MIGRAINE
     Route: 062
     Dates: start: 20160315, end: 20160315
  3. SYNTHROID [Concomitant]
     Active Substance: LEVOTHYROXINE SODIUM
  4. WELLBUTRIN [Concomitant]
     Active Substance: BUPROPION HYDROCHLORIDE
  5. SOLODYN [Concomitant]
     Active Substance: MINOCYCLINE HYDROCHLORIDE

REACTIONS (18)
  - Application site discolouration [Recovered/Resolved]
  - Application site irritation [Recovered/Resolved]
  - Product adhesion issue [Unknown]
  - Application site burn [Recovered/Resolved]
  - Wrong technique in product usage process [Unknown]
  - Product leakage [Unknown]
  - Incorrect drug administration duration [Unknown]
  - Application site papules [Recovered/Resolved]
  - Application site pruritus [Recovered/Resolved]
  - Application site urticaria [Recovered/Resolved]
  - Application site swelling [Recovered/Resolved]
  - Drug ineffective [Unknown]
  - Application site erythema [Recovered/Resolved]
  - Application site discomfort [Recovered/Resolved]
  - Migraine [Unknown]
  - Application site warmth [Recovered/Resolved]
  - Drug effect incomplete [Unknown]
  - Application site pain [Recovered/Resolved]

NARRATIVE: CASE EVENT DATE: 20160315
